FAERS Safety Report 19019453 (Version 1)
Quarter: 2021Q1

REPORT INFORMATION
  Report Type: Spontaneous
  Country: TN (occurrence: TN)
  Receive Date: 20210317
  Receipt Date: 20210317
  Transmission Date: 20210420
  Serious: Yes (Other)
  Sender: FDA-Public Use
  Company Number: TN-GLAXOSMITHKLINE-TN2021GSK062850

PATIENT
  Age: 49 Year
  Sex: Male

DRUGS (3)
  1. LAMOTRIGINE. [Suspect]
     Active Substance: LAMOTRIGINE
     Indication: EPILEPSY
     Dosage: GRADUAL INCREASE
  2. VALPROIC ACID. [Suspect]
     Active Substance: VALPROIC ACID
     Indication: EPILEPSY
  3. VALPROIC ACID. [Suspect]
     Active Substance: VALPROIC ACID
     Dosage: 1500 MG, PER DAY

REACTIONS (19)
  - Drug reaction with eosinophilia and systemic symptoms [Recovered/Resolved]
  - Parakeratosis [Recovered/Resolved]
  - Oedema peripheral [Recovered/Resolved]
  - Face oedema [Recovered/Resolved]
  - Purpura [Recovered/Resolved]
  - Skin lesion [Recovered/Resolved]
  - Hepatocellular injury [Recovered/Resolved]
  - Epidermal necrosis [Recovered/Resolved]
  - Skin oedema [Recovered/Resolved]
  - Symptom recurrence [Recovered/Resolved]
  - Condition aggravated [Recovered/Resolved]
  - Rash maculo-papular [Recovered/Resolved]
  - Rash pruritic [Recovered/Resolved]
  - Lymphadenopathy [Recovered/Resolved]
  - Swelling face [Recovered/Resolved]
  - Eosinophilia [Recovered/Resolved]
  - Pyrexia [Recovered/Resolved]
  - Pustule [Recovered/Resolved]
  - Leukocytosis [Recovered/Resolved]
